FAERS Safety Report 25951564 (Version 3)
Quarter: 2025Q4

REPORT INFORMATION
  Report Type: Report from Study
  Country: CN (occurrence: CN)
  Receive Date: 20251023
  Receipt Date: 20251121
  Transmission Date: 20260117
  Serious: Yes (Hospitalization)
  Sender: DAIICHI
  Company Number: CN-DSJP-DS-2025-170587-CN

PATIENT
  Sex: Female
  Weight: 69 kg

DRUGS (24)
  1. ENHERTU [Suspect]
     Active Substance: FAM-TRASTUZUMAB DERUXTECAN-NXKI
     Indication: Breast cancer
     Dosage: UNK, ONCE EVERY 3 WK,  DRIP SPEED: (250/90) ML/MIN
     Route: 041
     Dates: start: 20241122, end: 20241122
  2. ENHERTU [Suspect]
     Active Substance: FAM-TRASTUZUMAB DERUXTECAN-NXKI
     Dosage: UNK, ONCE EVERY 3 WK
     Route: 041
     Dates: start: 20241216, end: 20241216
  3. ENHERTU [Suspect]
     Active Substance: FAM-TRASTUZUMAB DERUXTECAN-NXKI
     Dosage: UNK, DRIP SPEED: (60) ML/MIN
     Route: 041
     Dates: start: 20250107, end: 20250107
  4. ENHERTU [Suspect]
     Active Substance: FAM-TRASTUZUMAB DERUXTECAN-NXKI
     Dosage: UNK, DRIP SPEED: (30) ML/MIN
     Route: 041
     Dates: start: 20250207, end: 20250207
  5. ENHERTU [Suspect]
     Active Substance: FAM-TRASTUZUMAB DERUXTECAN-NXKI
     Dosage: UNK
     Route: 041
     Dates: start: 20250331, end: 20250331
  6. ENHERTU [Suspect]
     Active Substance: FAM-TRASTUZUMAB DERUXTECAN-NXKI
     Dosage: UNK
     Route: 041
     Dates: start: 20250429, end: 20250429
  7. ENHERTU [Suspect]
     Active Substance: FAM-TRASTUZUMAB DERUXTECAN-NXKI
     Dosage: UNK
     Route: 041
     Dates: start: 20250520, end: 20250520
  8. ENHERTU [Suspect]
     Active Substance: FAM-TRASTUZUMAB DERUXTECAN-NXKI
     Dosage: UNK
     Route: 041
     Dates: start: 20250612, end: 20250612
  9. ENHERTU [Suspect]
     Active Substance: FAM-TRASTUZUMAB DERUXTECAN-NXKI
     Dosage: UNK
     Route: 041
     Dates: start: 20250707, end: 20250707
  10. ENHERTU [Suspect]
     Active Substance: FAM-TRASTUZUMAB DERUXTECAN-NXKI
     Dosage: UNK
     Route: 041
     Dates: start: 20250730, end: 20250730
  11. ENHERTU [Suspect]
     Active Substance: FAM-TRASTUZUMAB DERUXTECAN-NXKI
     Dosage: UNK
     Route: 041
     Dates: start: 20250909, end: 20250909
  12. ENHERTU [Suspect]
     Active Substance: FAM-TRASTUZUMAB DERUXTECAN-NXKI
     Dosage: UNK
     Route: 041
     Dates: start: 20251017, end: 20251017
  13. BICYCLOL [Concomitant]
     Active Substance: BICYCLOL
     Indication: Hepatic function abnormal
     Dosage: 50 MG, TID
     Route: 048
     Dates: start: 20241209
  14. KANG FU XIN [Concomitant]
     Indication: Wound
     Dosage: UNK
     Route: 061
     Dates: start: 20241120
  15. KANG FU XIN [Concomitant]
     Indication: Prophylaxis
  16. MUPIROCIN [Concomitant]
     Active Substance: MUPIROCIN
     Indication: Infection prophylaxis
     Dosage: UNK, AS NEEDED
     Route: 061
     Dates: start: 20241124
  17. OLANZAPINE [Concomitant]
     Active Substance: OLANZAPINE
     Indication: Prophylaxis of nausea and vomiting
     Dosage: 5 MG, AS NEEDED
     Route: 048
     Dates: start: 20250430
  18. VITAMIN D NOS [Concomitant]
     Active Substance: CHOLECALCIFEROL\ERGOCALCIFEROL
     Indication: Bone demineralisation
     Dosage: 400 IU, QD (DROPS)
     Route: 048
     Dates: start: 20250612
  19. CALCIUM CARBONATE\CHOLECALCIFEROL [Concomitant]
     Active Substance: CALCIUM CARBONATE\CHOLECALCIFEROL
     Indication: Bone demineralisation
     Dosage: 1.5 G, QD
     Route: 048
     Dates: start: 20250708
  20. OMEPRAZOLE SODIUM [Concomitant]
     Active Substance: OMEPRAZOLE SODIUM
     Indication: Gastrointestinal disorder prophylaxis
     Dosage: 40 MG, SINGLE
     Route: 041
     Dates: start: 20251017, end: 20251017
  21. VITAMIN C [Concomitant]
     Active Substance: ASCORBIC ACID
     Indication: Fluid replacement
     Dosage: 3.0 G, SINGLE
     Route: 041
     Dates: start: 20251017, end: 20251017
  22. VITAMIN B6 [Concomitant]
     Active Substance: PYRIDOXINE HYDROCHLORIDE
     Indication: Fluid replacement
     Dosage: 200 MG, SINGLE
     Route: 041
     Dates: start: 20251017, end: 20251017
  23. DEXAMETHASONE SODIUM PHOSPHATE [Concomitant]
     Active Substance: DEXAMETHASONE SODIUM PHOSPHATE
     Indication: Allergy prophylaxis
     Dosage: 5 MG, SINGLE
     Route: 041
     Dates: start: 20251017, end: 20251017
  24. NETUPITANT AND PALONOSETRON HYDROCHLORIDE [Concomitant]
     Indication: Prophylaxis of nausea and vomiting
     Dosage: 0.3 MG, SINGLE
     Route: 048
     Dates: start: 20251017, end: 20251017

REACTIONS (1)
  - Type 2 diabetes mellitus [Not Recovered/Not Resolved]

NARRATIVE: CASE EVENT DATE: 20251017
